FAERS Safety Report 20163842 (Version 1)
Quarter: 2021Q4

REPORT INFORMATION
  Report Type: Spontaneous
  Country: US (occurrence: US)
  Receive Date: 20211209
  Receipt Date: 20211209
  Transmission Date: 20220303
  Serious: Yes (Death, Hospitalization, Other)
  Sender: FDA-Public Use
  Company Number: US-SA-2021SA407569

PATIENT
  Age: 44 Year
  Sex: Male

DRUGS (8)
  1. PREDNISONE [Suspect]
     Active Substance: PREDNISONE
     Indication: Pemphigus
     Dosage: 10 MG DAILY
     Dates: start: 195809
  2. DEXAMETHASONE [Suspect]
     Active Substance: DEXAMETHASONE
     Indication: Pemphigus
     Dosage: 30 MG
     Route: 048
     Dates: start: 19580913
  3. HYDROCORTISONE [Suspect]
     Active Substance: HYDROCORTISONE
     Indication: Pemphigus
     Dosage: 100 MG
     Route: 042
     Dates: start: 195809
  4. CHLORAMPHENICOL [Suspect]
     Active Substance: CHLORAMPHENICOL
     Indication: Pseudomonas infection
     Dosage: 2 G, QD
     Dates: start: 195809
  5. CHLORAMPHENICOL [Suspect]
     Active Substance: CHLORAMPHENICOL
     Indication: Enterococcal infection
     Dosage: 2 G, QD
     Route: 030
     Dates: start: 195809
  6. ACTH [Suspect]
     Active Substance: CORTICOTROPIN
     Indication: Pemphigus
     Dosage: 40 U
     Route: 030
     Dates: start: 19580913
  7. ACTH [Suspect]
     Active Substance: CORTICOTROPIN
     Dosage: 40 U
     Dates: start: 195809
  8. CHLORPROMAZINE [Concomitant]
     Active Substance: CHLORPROMAZINE
     Indication: Agitation
     Dosage: 100 MG DAILY
     Dates: start: 195809

REACTIONS (16)
  - Amoebiasis [Fatal]
  - Diarrhoea [Fatal]
  - Defaecation urgency [Fatal]
  - Gastrointestinal sounds abnormal [Fatal]
  - Mucosal ulceration [Fatal]
  - Oedema mucosal [Fatal]
  - Mucosal hyperaemia [Fatal]
  - Abdominal pain [Fatal]
  - Abdominal rebound tenderness [Fatal]
  - Intestinal perforation [Fatal]
  - Amoebic colitis [Fatal]
  - Encephalomalacia [Unknown]
  - Depressed level of consciousness [Unknown]
  - White blood cell count decreased [Unknown]
  - Enterococcal infection [Unknown]
  - Pseudomonas infection [Unknown]

NARRATIVE: CASE EVENT DATE: 19580901
